FAERS Safety Report 25144535 (Version 1)
Quarter: 2025Q2

REPORT INFORMATION
  Report Type: Spontaneous
  Country: TR (occurrence: TR)
  Receive Date: 20250401
  Receipt Date: 20250401
  Transmission Date: 20250717
  Serious: Yes (Death, Other)
  Sender: AMGEN
  Company Number: TR-AMGEN-TURSP2025061059

PATIENT

DRUGS (2)
  1. ADALIMUMAB [Suspect]
     Active Substance: ADALIMUMAB
     Indication: Rheumatic disorder
     Route: 065
  2. COVID-19 vaccine [Concomitant]

REACTIONS (16)
  - COVID-19 [Fatal]
  - Rheumatoid arthritis [Unknown]
  - Ankylosing spondylitis [Unknown]
  - Angioedema [Unknown]
  - Injection site erythema [Unknown]
  - Malaise [Unknown]
  - Headache [Unknown]
  - Myalgia [Unknown]
  - Pyrexia [Unknown]
  - Hypersensitivity [Unknown]
  - Vomiting [Unknown]
  - Nausea [Unknown]
  - Arthritis [Unknown]
  - Hypoaesthesia [Unknown]
  - Injection site pain [Unknown]
  - Arthralgia [Unknown]
